FAERS Safety Report 7406719-2 (Version None)
Quarter: 2011Q2

REPORT INFORMATION
  Report Type: 
  Country: None (occurrence: None)
  Receive Date: 20110406
  Receipt Date: 20110406
  Transmission Date: 20111010
  Serious: Yes (Hospitalization)
  Sender: FDA-Public Use
  Company Number: None

PATIENT
  Sex: Female
  Weight: 70.8 kg

DRUGS (2)
  1. TAXOL [Suspect]
     Dosage: 297 MG
  2. CARBOPLATIN [Suspect]
     Dosage: 344 MG

REACTIONS (4)
  - VOMITING [None]
  - TENDONITIS [None]
  - NAUSEA [None]
  - CALCINOSIS [None]
